FAERS Safety Report 16011927 (Version 6)
Quarter: 2021Q3

REPORT INFORMATION
  Report Type: Report from Study
  Country: CN (occurrence: CN)
  Receive Date: 20190227
  Receipt Date: 20210730
  Transmission Date: 20211014
  Serious: Yes (Hospitalization)
  Sender: FDA-Public Use
  Company Number: CN-ROCHE-2270677

PATIENT
  Age: 51 Year
  Sex: Female
  Weight: 70 kg

DRUGS (32)
  1. CIMETIDINE [Concomitant]
     Active Substance: CIMETIDINE
     Dates: start: 20190125, end: 20190125
  2. NIFEDIPINE SUSTAINED RELEASE TABLETS (I) [Concomitant]
     Dates: start: 2004
  3. CIMETIDINE [Concomitant]
     Active Substance: CIMETIDINE
     Dates: start: 20190218, end: 20190218
  4. SODIUM CHLORIDE. [Concomitant]
     Active Substance: SODIUM CHLORIDE
     Dates: start: 20190218, end: 20190220
  5. GLUTATHIONE REDUCED [Concomitant]
     Indication: ASPARTATE AMINOTRANSFERASE INCREASED
     Dates: start: 20190125, end: 20190127
  6. IRON SUCROSE [Concomitant]
     Active Substance: IRON SUCROSE
     Indication: ANAEMIA
     Dates: start: 20190214, end: 20190217
  7. IODIXANOL. [Concomitant]
     Active Substance: IODIXANOL
     Dates: start: 20190123, end: 20190123
  8. ATEZOLIZUMAB. [Suspect]
     Active Substance: ATEZOLIZUMAB
     Indication: OVARIAN CANCER
     Dosage: DATE OF MOST RECENT DOSE OF BLINDED ATEZOLIZUMAB PRIOR TO SAE ONSET: 18/FEB/2019
     Route: 041
     Dates: start: 20181122
  9. PALONOSETRON HYDROCHLORIDE. [Concomitant]
     Active Substance: PALONOSETRON HYDROCHLORIDE
     Dates: start: 20190124, end: 20190127
  10. DEXAMETHASONE. [Concomitant]
     Active Substance: DEXAMETHASONE
     Indication: ALLERGY PROPHYLAXIS
     Route: 048
     Dates: start: 20190124, end: 20190125
  11. POTASSIUM CHLORIDE. [Concomitant]
     Active Substance: POTASSIUM CHLORIDE
     Indication: HYPOKALAEMIA
     Dates: start: 20190127, end: 20190208
  12. CARBOPLATIN. [Suspect]
     Active Substance: CARBOPLATIN
     Indication: OVARIAN CANCER
     Dosage: MOST RECENT DOSE OF 779.27 MG OF CARBOPLATIN ADMINISTERED PRIOR TO SAE ONSET: 18/FEB/2019
     Route: 042
     Dates: start: 20181122
  13. DEXAMETHASONE. [Concomitant]
     Active Substance: DEXAMETHASONE
     Dates: start: 20190217, end: 20190218
  14. SODIUM CHLORIDE. [Concomitant]
     Active Substance: SODIUM CHLORIDE
     Indication: NUTRITIONAL SUPPLEMENTATION
     Dates: start: 20190125, end: 20190127
  15. GLUCOSE [Concomitant]
     Active Substance: DEXTROSE
     Dates: start: 20190125, end: 20190127
  16. LACTULOSE. [Concomitant]
     Active Substance: LACTULOSE
     Dates: start: 20190214, end: 20190218
  17. BEVACIZUMAB. [Suspect]
     Active Substance: BEVACIZUMAB
     Indication: OVARIAN CANCER
     Dosage: DATE OF MOST RECENT DOSE OF 1005 MG OF BEVACIZUMAB PRIOR TO SAE ONSET: 18/FEB/2019
     Route: 042
     Dates: start: 20181212
  18. PACLITAXEL. [Suspect]
     Active Substance: PACLITAXEL
     Indication: OVARIAN CANCER
     Dosage: DATE OF MOST RECENT DOSE OF 299.78 MG OF PACLITAXEL PRIOR TO SAE ONSET: 18/FEB/2019
     Route: 042
     Dates: start: 20181122
  19. PALONOSETRON HYDROCHLORIDE. [Concomitant]
     Active Substance: PALONOSETRON HYDROCHLORIDE
     Indication: PROPHYLAXIS OF NAUSEA AND VOMITING
     Dates: start: 20190125, end: 20190127
  20. DIPHENHYDRAMINE HYDROCHLORIDE. [Concomitant]
     Active Substance: DIPHENHYDRAMINE HYDROCHLORIDE
     Indication: ALLERGY PROPHYLAXIS
     Dates: start: 20190125, end: 20190125
  21. GLUTATHIONE REDUCED [Concomitant]
     Dates: start: 20190217, end: 20190217
  22. TELMISARTAN. [Concomitant]
     Active Substance: TELMISARTAN
     Dates: start: 2004
  23. ROSUVASTATIN CALCIUM. [Concomitant]
     Active Substance: ROSUVASTATIN CALCIUM
     Indication: HYPERLIPIDAEMIA
     Dates: start: 201810
  24. PALONOSETRON HYDROCHLORIDE. [Concomitant]
     Active Substance: PALONOSETRON HYDROCHLORIDE
     Dates: start: 20190218, end: 20190220
  25. GLUTATHIONE REDUCED [Concomitant]
     Dates: start: 20190219, end: 20190219
  26. GLUCOSE [Concomitant]
     Active Substance: DEXTROSE
     Dates: start: 20190218, end: 20190220
  27. LACTULOSE. [Concomitant]
     Active Substance: LACTULOSE
     Indication: CONSTIPATION
     Route: 048
     Dates: start: 20190124, end: 20190203
  28. OMEPRAZOLE SODIUM [Concomitant]
     Active Substance: OMEPRAZOLE SODIUM
     Dates: start: 20190125, end: 20190127
  29. OMEPRAZOLE SODIUM [Concomitant]
     Active Substance: OMEPRAZOLE SODIUM
     Dates: start: 20190218, end: 20190220
  30. DIPHENHYDRAMINE HYDROCHLORIDE. [Concomitant]
     Active Substance: DIPHENHYDRAMINE HYDROCHLORIDE
     Dates: start: 20190218, end: 20190218
  31. GLUTATHIONE REDUCED [Concomitant]
     Dates: start: 20190220, end: 20190312
  32. MULTIPLE ELECTROLYTES [Concomitant]
     Active Substance: ELECTROLYTES NOS
     Dates: start: 20190218, end: 20190220

REACTIONS (1)
  - White blood cell count decreased [Recovered/Resolved]

NARRATIVE: CASE EVENT DATE: 20190220
